FAERS Safety Report 11086922 (Version 1)
Quarter: 2015Q2

REPORT INFORMATION
  Report Type: Spontaneous
  Country: BR (occurrence: BR)
  Receive Date: 20150504
  Receipt Date: 20150504
  Transmission Date: 20150821
  Serious: Yes (Other)
  Sender: FDA-Public Use
  Company Number: BR-SA-2014SA180932

PATIENT
  Age: 21 Year
  Sex: Female
  Weight: 66.9 kg

DRUGS (5)
  1. CLEXANE [Suspect]
     Active Substance: ENOXAPARIN SODIUM
     Indication: THROMBOSIS PROPHYLAXIS
     Dosage: 1 SYRINGE A DAY IN THE MORNING?STOP DATE: 3 WEEKS AFTER DELIVERY
     Route: 058
     Dates: start: 20141229
  2. ASPIRIN. [Concomitant]
     Active Substance: ASPIRIN
     Indication: ANTICOAGULANT THERAPY
     Route: 048
     Dates: start: 20141229
  3. FOLIC ACID. [Concomitant]
     Active Substance: FOLIC ACID
     Indication: ANTICOAGULANT THERAPY
     Route: 048
     Dates: start: 20141229
  4. MINERALS NOS/VITAMINS NOS [Concomitant]
     Route: 048
     Dates: start: 201407
  5. OMEGA 3 [Concomitant]
     Active Substance: OMEGA-3 FATTY ACIDS
     Route: 048
     Dates: start: 201412

REACTIONS (4)
  - Foetal distress syndrome [Unknown]
  - Injection site discolouration [Recovering/Resolving]
  - Injection site haematoma [Unknown]
  - Exposure during pregnancy [Unknown]
